FAERS Safety Report 4777083-2 (Version None)
Quarter: 2005Q3

REPORT INFORMATION
  Report Type: 
  Country: None (occurrence: None)
  Receive Date: 20050923
  Receipt Date: 20050913
  Transmission Date: 20060218
  Serious: Yes (Death)
  Sender: FDA-Public Use
  Company Number: DE-JNJFOC-20050800840

PATIENT
  Sex: Female
  Weight: 55 kg

DRUGS (5)
  1. RISPERDAL [Suspect]
     Route: 048
  2. RISPERDAL [Suspect]
     Indication: AGGRESSION
     Route: 048
  3. LISINOPRIL [Concomitant]
     Indication: HYPERTENSION
  4. DIGIMERCK [Concomitant]
  5. VALIUM [Concomitant]
     Indication: AGITATION

REACTIONS (2)
  - DEATH [None]
  - GENERAL PHYSICAL HEALTH DETERIORATION [None]
